FAERS Safety Report 21952438 (Version 1)
Quarter: 2023Q1

REPORT INFORMATION
  Report Type: Spontaneous
  Country: DE (occurrence: DE)
  Receive Date: 20230203
  Receipt Date: 20230203
  Transmission Date: 20230418
  Serious: Yes (Other)
  Sender: FDA-Public Use
  Company Number: DE-JNJFOC-20230154737

PATIENT
  Age: 7 Decade

DRUGS (2)
  1. DEXAMETHASONE [Suspect]
     Active Substance: DEXAMETHASONE
     Indication: Plasma cell myeloma refractory
     Dosage: THIRD LINE OF TREATMENT
     Route: 065
     Dates: start: 20230102, end: 20230123
  2. VELCADE [Suspect]
     Active Substance: BORTEZOMIB
     Indication: Plasma cell myeloma refractory
     Dosage: THIRD LINE OF TREATMENT
     Route: 065
     Dates: start: 20230102, end: 20230123

REACTIONS (1)
  - Plasma cell myeloma [Unknown]
